FAERS Safety Report 7522097-2 (Version None)
Quarter: 2011Q2

REPORT INFORMATION
  Report Type: 
  Country: None (occurrence: None)
  Receive Date: 20110603
  Receipt Date: 20110601
  Transmission Date: 20111010
  Serious: Yes (Other)
  Sender: FDA-Public Use
  Company Number: AU-PFIZER INC-2011119166

PATIENT
  Age: 60 Year

DRUGS (3)
  1. ZOLOFT [Concomitant]
  2. VARENICLINE TARTRATE [Suspect]
  3. EDRONAX [Concomitant]

REACTIONS (8)
  - VIRAL INFECTION [None]
  - DYSGEUSIA [None]
  - NIGHTMARE [None]
  - TENSION [None]
  - NERVOUSNESS [None]
  - EMOTIONAL DISORDER [None]
  - CRYING [None]
  - DRY MOUTH [None]
